FAERS Safety Report 9909459 (Version 1)
Quarter: 2014Q1

REPORT INFORMATION
  Report Type: Spontaneous
  Country: US (occurrence: None)
  Receive Date: 20140214
  Receipt Date: 20140214
  Transmission Date: 20141002
  Serious: No
  Sender: FDA-Public Use
  Company Number: None

PATIENT
  Age: 69 Year
  Sex: Male

DRUGS (11)
  1. WARFARIN [Suspect]
     Route: 048
  2. PLAVIX [Concomitant]
  3. ASPIRIN [Concomitant]
  4. METFORMIN [Concomitant]
  5. DIGOXIN [Concomitant]
  6. COREG [Concomitant]
  7. LASIX [Concomitant]
  8. AFRIN [Concomitant]
  9. ZANTAC [Concomitant]
  10. VALSARTAN [Concomitant]
  11. ZOCOR [Concomitant]

REACTIONS (2)
  - Malaise [None]
  - Epistaxis [None]
